FAERS Safety Report 4933408-6 (Version None)
Quarter: 2006Q1

REPORT INFORMATION
  Report Type: 
  Country: None (occurrence: None)
  Receive Date: 20060306
  Receipt Date: 20051130
  Transmission Date: 20060701
  Serious: Yes (Death)
  Sender: FDA-Public Use
  Company Number: US-MERCK-0512USA00046

PATIENT
  Sex: Female

DRUGS (1)
  1. VIOXX [Suspect]
     Indication: OSTEOARTHRITIS
     Route: 048
     Dates: start: 20000426, end: 20040305

REACTIONS (5)
  - ABDOMINAL PAIN LOWER [None]
  - BRONCHITIS ACUTE [None]
  - CATARACT [None]
  - MYOCARDIAL INFARCTION [None]
  - SKIN LESION [None]
